FAERS Safety Report 25600547 (Version 2)
Quarter: 2025Q4

REPORT INFORMATION
  Report Type: Report from Study
  Country: ZA (occurrence: ZA)
  Receive Date: 20250724
  Receipt Date: 20251222
  Transmission Date: 20260117
  Serious: Yes (Hospitalization, Other)
  Sender: ALEXION PHARMACEUTICALS
  Company Number: ZA-AstraZeneca-CH-00912756A

PATIENT
  Age: 59 Year
  Sex: Female

DRUGS (6)
  1. BUDESONIDE\FORMOTEROL [Suspect]
     Active Substance: BUDESONIDE\FORMOTEROL
     Indication: Lung disorder
     Dosage: 120 UNK
  2. DORMONOCT [Concomitant]
     Active Substance: LOPRAZOLAM
     Indication: Insomnia
     Route: 061
  3. OXAZEPAM [Concomitant]
     Active Substance: OXAZEPAM
     Indication: Anxiety
     Route: 061
  4. AMITRIPTYLINE [Concomitant]
     Active Substance: AMITRIPTYLINE
     Indication: Depression
     Route: 061
  5. Tramazac [Concomitant]
     Indication: Pain
     Route: 061
  6. PANTOPRAZOLE SODIUM [Concomitant]
     Active Substance: PANTOPRAZOLE SODIUM
     Indication: Ulcer
     Route: 061

REACTIONS (3)
  - Illness [Unknown]
  - Intestinal obstruction [Recovered/Resolved]
  - Anaemia [Unknown]
